FAERS Safety Report 5960117-7 (Version None)
Quarter: 2008Q4

REPORT INFORMATION
  Report Type: 
  Country: None (occurrence: None)
  Receive Date: 20081118
  Receipt Date: 20081118
  Transmission Date: 20090506
  Serious: No
  Sender: FDA-Public Use
  Company Number: None

PATIENT
  Age: 57 Year
  Sex: Female
  Weight: 65.7716 kg

DRUGS (2)
  1. ESTRADIOL/NORETHINDRONE ACETATE 1.0/0.5 MG PHARMACEUTICS INTERNATIONAL [Suspect]
     Indication: OESTROGEN DEFICIENCY
     Dosage: 1 TABLET DAILY PO
     Route: 048
     Dates: start: 20080915, end: 20081015
  2. ESTRADIOL/NORETHINDRONE ACETATE 1.0/0.5 MG PHARMACEUTICS INTERNATIONAL [Suspect]
     Indication: OSTEOPENIA
     Dosage: 1 TABLET DAILY PO
     Route: 048
     Dates: start: 20080915, end: 20081015

REACTIONS (2)
  - PRODUCT QUALITY ISSUE [None]
  - VAGINAL HAEMORRHAGE [None]
